FAERS Safety Report 20732608 (Version 6)
Quarter: 2022Q3

REPORT INFORMATION
  Report Type: Report from Study
  Country: JP (occurrence: JP)
  Receive Date: 20220420
  Receipt Date: 20220810
  Transmission Date: 20221027
  Serious: Yes (Other)
  Sender: FDA-Public Use
  Company Number: JP-ONO-2021JP017127

PATIENT
  Age: 64 Year
  Sex: Male
  Weight: 65.8 kg

DRUGS (9)
  1. BRAFTOVI [Suspect]
     Active Substance: ENCORAFENIB
     Indication: Rectal cancer
     Dosage: 300 MG, EVERYDAY
     Route: 048
     Dates: start: 20210409, end: 20210707
  2. BRAFTOVI [Suspect]
     Active Substance: ENCORAFENIB
     Dosage: 225 MG, EVERYDAY
     Route: 048
     Dates: start: 20210714
  3. MEKTOVI [Suspect]
     Active Substance: BINIMETINIB
     Indication: Rectal cancer
     Dosage: 90 MG, EVERYDAY
     Route: 048
     Dates: start: 20210409, end: 20210602
  4. CETUXIMAB [Suspect]
     Active Substance: CETUXIMAB
     Indication: Rectal cancer
     Dosage: 400 MG/M2
     Route: 065
     Dates: start: 20210409, end: 20210409
  5. CETUXIMAB [Suspect]
     Active Substance: CETUXIMAB
     Dosage: 250 MG/M2
     Route: 065
     Dates: start: 20210421
  6. OXYCONTIN [Suspect]
     Active Substance: OXYCODONE HYDROCHLORIDE
     Dosage: UNK
     Route: 065
  7. LOCOID [Concomitant]
     Active Substance: HYDROCORTISONE BUTYRATE
     Dosage: SEVERAL TIMES A DAY, OPTIMAL DOSE. STOP DATE: 2021/04/15
     Route: 061
     Dates: end: 20210415
  8. ALOSENN [SENNOSIDE A+B] [Concomitant]
     Indication: Constipation
     Dosage: UNK, (ORAL DRUG UNSPECIFIED FORM)
     Route: 048
  9. MAGNESIUM OXIDE [Concomitant]
     Active Substance: MAGNESIUM OXIDE
     Indication: Constipation
     Dosage: UNK, (ORAL DRUG UNSPECIFIED FORM)
     Route: 048

REACTIONS (9)
  - Subretinal fluid [Recovered/Resolved]
  - Paronychia [Recovering/Resolving]
  - Diarrhoea [Recovered/Resolved]
  - Nausea [Recovering/Resolving]
  - Vomiting [Recovered/Resolved]
  - Malaise [Not Recovered/Not Resolved]
  - Dermatitis acneiform [Recovering/Resolving]
  - Dry skin [Recovering/Resolving]
  - Constipation [Recovering/Resolving]

NARRATIVE: CASE EVENT DATE: 20210410
